FAERS Safety Report 8532485-3 (Version None)
Quarter: 2012Q3

REPORT INFORMATION
  Report Type: 
  Country: None (occurrence: None)
  Receive Date: 20120716
  Receipt Date: 20120716
  Transmission Date: 20120928
  Serious: Yes (Hospitalization, Disabling, Other)
  Sender: FDA-Public Use
  Company Number: None

PATIENT
  Age: 60 Year
  Sex: Male
  Weight: 100.6985 kg

DRUGS (1)
  1. LEVAQUIN [Suspect]

REACTIONS (5)
  - LIGAMENT RUPTURE [None]
  - MYALGIA [None]
  - ARTHRALGIA [None]
  - NAUSEA [None]
  - CARPAL TUNNEL DECOMPRESSION [None]
